FAERS Safety Report 9323087 (Version 1)
Quarter: 2013Q2

REPORT INFORMATION
  Report Type: Spontaneous
  Country: BR (occurrence: BR)
  Receive Date: 20130603
  Receipt Date: 20130603
  Transmission Date: 20140414
  Serious: Yes (Hospitalization)
  Sender: FDA-Public Use
  Company Number: BR-BIOGENIDEC-2013BI047316

PATIENT
  Age: 47 Year
  Sex: Female

DRUGS (2)
  1. AVONEX [Suspect]
     Indication: MULTIPLE SCLEROSIS
     Route: 030
     Dates: start: 20080101
  2. CLEXANE [Concomitant]
     Indication: PREMEDICATION

REACTIONS (4)
  - Benign neoplasm [Recovered/Resolved]
  - Extravasation blood [Recovered/Resolved]
  - Wound dehiscence [Unknown]
  - Coagulopathy [Recovered/Resolved]
